FAERS Safety Report 5092679-9 (Version None)
Quarter: 2006Q3

REPORT INFORMATION
  Report Type: 
  Country: None (occurrence: None)
  Receive Date: 20060830
  Receipt Date: 20060811
  Transmission Date: 20061208
  Serious: Yes (Death, Hospitalization)
  Sender: FDA-Public Use
  Company Number: IT-BAYER-200613551GDS

PATIENT
  Age: 54 Year
  Sex: Male
  Weight: 50 kg

DRUGS (2)
  1. SORAFENIB [Suspect]
     Indication: RENAL CELL CARCINOMA STAGE UNSPECIFIED
     Dosage: TOTAL DAILY DOSE: 400 MG
     Route: 048
     Dates: start: 20060802, end: 20060811
  2. SORAFENIB [Suspect]
     Route: 048
     Dates: start: 20060704, end: 20060811

REACTIONS (2)
  - CONVULSION [None]
  - METASTATIC RENAL CELL CARCINOMA [None]
